FAERS Safety Report 6169918-6 (Version None)
Quarter: 2009Q2

REPORT INFORMATION
  Report Type: 
  Country: None (occurrence: None)
  Receive Date: 20090428
  Receipt Date: 20080522
  Transmission Date: 20091009
  Serious: No
  Sender: FDA-Public Use
  Company Number: A0729253A

PATIENT
  Sex: Female

DRUGS (2)
  1. SEREVENT [Suspect]
     Dosage: 1PUFF UNKNOWN
     Route: 065
     Dates: start: 19980101
  2. NO CONCURRENT MEDICATION [Concomitant]

REACTIONS (1)
  - MUSCLE SPASMS [None]
